FAERS Safety Report 10696426 (Version 2)
Quarter: 2015Q1

REPORT INFORMATION
  Report Type: Spontaneous
  Country: AU (occurrence: AU)
  Receive Date: 20150107
  Receipt Date: 20150123
  Transmission Date: 20150721
  Serious: Yes (Other)
  Sender: FDA-Public Use
  Company Number: AU-APOTEX-2015AP005020

PATIENT
  Sex: Male

DRUGS (2)
  1. AMIODARONE [Suspect]
     Active Substance: AMIODARONE
     Indication: PRODUCT USED FOR UNKNOWN INDICATION
     Dosage: UNK
     Route: 065
  2. DRONEDARONE [Suspect]
     Active Substance: DRONEDARONE
     Indication: PRODUCT USED FOR UNKNOWN INDICATION
     Dosage: UNK
     Route: 048

REACTIONS (23)
  - Cough [Unknown]
  - Blood count abnormal [Unknown]
  - Tremor [Unknown]
  - Depression [Unknown]
  - Gastrointestinal haemorrhage [Unknown]
  - Paraesthesia [Unknown]
  - Myalgia [Unknown]
  - Product quality issue [Unknown]
  - Nervousness [Unknown]
  - Fatigue [Unknown]
  - Confusional state [Unknown]
  - Visual impairment [Unknown]
  - Pleural effusion [Unknown]
  - Muscular weakness [Unknown]
  - Photosensitivity reaction [Unknown]
  - Dyspnoea [Unknown]
  - Chills [Unknown]
  - Atrial fibrillation [Unknown]
  - Affect lability [Unknown]
  - Hypoaesthesia [Unknown]
  - Sleep disorder [Unknown]
  - Headache [Unknown]
  - Arrhythmia [Unknown]
